FAERS Safety Report 20745534 (Version 2)
Quarter: 2022Q2

REPORT INFORMATION
  Report Type: Spontaneous
  Country: US (occurrence: US)
  Receive Date: 20220425
  Receipt Date: 20220428
  Transmission Date: 20220721
  Serious: Yes (Other)
  Sender: FDA-Public Use
  Company Number: US-PFIZER INC-202200584495

PATIENT
  Age: 36 Year
  Sex: Female

DRUGS (6)
  1. METHYLPREDNISOLONE [Suspect]
     Active Substance: METHYLPREDNISOLONE
     Indication: Immunosuppression
     Dosage: UNK
  2. RITUXIMAB [Suspect]
     Active Substance: RITUXIMAB
     Indication: Immune tolerance induction
     Dosage: UNK
  3. TACROLIMUS [Suspect]
     Active Substance: TACROLIMUS
     Indication: Immunosuppression
     Dosage: UNK
  4. MYCOPHENOLIC ACID [Suspect]
     Active Substance: MYCOPHENOLIC ACID
     Indication: Immunosuppression
     Dosage: UNK
  5. BELATACEPT [Concomitant]
     Active Substance: BELATACEPT
     Indication: Immune tolerance induction
     Dosage: UNK
  6. CARFILZOMIB [Concomitant]
     Active Substance: CARFILZOMIB
     Indication: Immune tolerance induction
     Dosage: UNK

REACTIONS (2)
  - COVID-19 [Recovered/Resolved]
  - Transmission of an infectious agent via transplant [Recovered/Resolved]
